FAERS Safety Report 6393799-9 (Version None)
Quarter: 2009Q4

REPORT INFORMATION
  Report Type: 
  Country: None (occurrence: None)
  Receive Date: 20091008
  Receipt Date: 20091006
  Transmission Date: 20100525
  Serious: Yes (Other)
  Sender: FDA-Public Use
  Company Number: US-ELI_LILLY_AND_COMPANY-US200908003245

PATIENT
  Sex: Female

DRUGS (16)
  1. ALIMTA [Suspect]
     Dosage: UNK, UNK
     Dates: start: 20090806
  2. FOLIC ACID [Concomitant]
     Dosage: 1 MG, DAILY (1/D)
     Route: 048
  3. VITAMIN B-12 [Concomitant]
  4. DEXAMETHASONE 0.5MG TAB [Concomitant]
     Dosage: 4 MG, DAY BEFORE, DAY OF, AND DAY AFTER CHEMOTHERAPY EVERY 3 WEEKS
     Route: 048
  5. LEXAPRO [Concomitant]
     Dosage: 20 MG, DAILY (1/D)
     Route: 048
  6. NEURONTIN [Concomitant]
     Dosage: 300 MG, 3/D
     Route: 048
  7. LIPITOR [Concomitant]
     Dosage: 20 MG, UNK
  8. ASPIRIN [Concomitant]
     Dosage: 81 MG, UNK
  9. PLAVIX [Concomitant]
     Dosage: 75 MG, UNK
  10. NYSTATIN [Concomitant]
     Dosage: 5 ML, 4/D
     Route: 047
  11. POTASSIUM CHLORIDE [Concomitant]
     Dosage: 40 MEQ, DAILY (1/D) FOR 3 DAYS
     Route: 048
  12. PHENAZOPYRIDINE HCL TAB [Concomitant]
     Dosage: 200 MG, 3/D FOR 2 DAYS
     Route: 048
  13. CIPRO [Concomitant]
     Dosage: 500 MG, 2/D FOR 7 DAYS
     Route: 048
  14. ATENOLOL [Concomitant]
     Dosage: 50 MG, AS NEEDED
     Route: 048
  15. PHENERGAN [Concomitant]
     Dosage: 25 MG, AS NEEDED EVERY 6 HOURS
     Route: 048
  16. ATIVAN [Concomitant]
     Indication: SLEEP DISORDER
     Dosage: 0.5 MG AS NEEDED AT BEDTIME
     Route: 048

REACTIONS (4)
  - PLATELET COUNT DECREASED [None]
  - RASH MACULO-PAPULAR [None]
  - RASH PRURITIC [None]
  - WHITE BLOOD CELL COUNT INCREASED [None]
